FAERS Safety Report 5606467-5 (Version None)
Quarter: 2008Q1

REPORT INFORMATION
  Report Type: 
  Country: None (occurrence: None)
  Receive Date: 20080129
  Receipt Date: 20080118
  Transmission Date: 20080703
  Serious: Yes (Death)
  Sender: FDA-Public Use
  Company Number: GB-MERCK-0702GBR00102

PATIENT
  Age: 91 Year
  Sex: Male

DRUGS (8)
  1. ZOCOR [Suspect]
     Indication: CARDIOVASCULAR DISORDER
     Route: 048
     Dates: start: 20061101, end: 20061230
  2. ALLOPURINOL [Concomitant]
     Route: 048
  3. AMLODIPINE BESYLATE [Concomitant]
     Route: 048
  4. BISOPROLOL [Concomitant]
     Route: 048
  5. CLOPIDOGREL BISULFATE [Concomitant]
     Route: 048
  6. ESOMEPRAZOLE [Concomitant]
     Route: 048
  7. NICORANDIL [Concomitant]
     Route: 048
  8. LEVOTHYROXINE SODIUM [Concomitant]
     Route: 048

REACTIONS (5)
  - COLITIS [None]
  - GASTROINTESTINAL HAEMORRHAGE [None]
  - PANCREATITIS [None]
  - RENAL FAILURE [None]
  - RHABDOMYOLYSIS [None]
